FAERS Safety Report 6658769-1 (Version None)
Quarter: 2010Q1

REPORT INFORMATION
  Report Type: 
  Country: None (occurrence: None)
  Receive Date: 20100325
  Receipt Date: 20100310
  Transmission Date: 20100710
  Serious: Yes (Hospitalization, Other)
  Sender: FDA-Public Use
  Company Number: 2009BI038513

PATIENT
  Age: 71 Year
  Sex: Female

DRUGS (14)
  1. ZEVALIN [Suspect]
     Indication: EXTRANODAL MARGINAL ZONE B-CELL LYMPHOMA (MALT TYPE) STAGE II
     Dosage: 740 MBQ; 1X; IV
     Route: 042
     Dates: start: 20090512, end: 20090519
  2. RITUXIMAB [Concomitant]
  3. LOXONIN [Concomitant]
  4. POLARAMINE [Concomitant]
  5. LENDORMIN [Concomitant]
  6. CONSTAN [Concomitant]
  7. MYSLEE [Concomitant]
  8. SOLANAX [Concomitant]
  9. ADALAT CC [Concomitant]
  10. LIPITOR [Concomitant]
  11. ASPIRIN [Concomitant]
  12. LANSOPRAZOLE [Concomitant]
  13. SELBEX [Concomitant]
  14. RITUXAN [Concomitant]

REACTIONS (3)
  - ABDOMINAL PAIN UPPER [None]
  - BONE MARROW FAILURE [None]
  - NEUROPATHY PERIPHERAL [None]
